FAERS Safety Report 7487802-2 (Version None)
Quarter: 2011Q2

REPORT INFORMATION
  Report Type: 
  Country: None (occurrence: None)
  Receive Date: 20110511
  Receipt Date: 20110427
  Transmission Date: 20111010
  Serious: Yes (Hospitalization)
  Sender: FDA-Public Use
  Company Number: CLO-11-02

PATIENT
  Age: 42 Year
  Sex: Male

DRUGS (2)
  1. CLONIDINE [Suspect]
     Indication: INTERVERTEBRAL DISC PROTRUSION
     Dosage: 0.3MG/DAY INTRATHECAL
     Route: 037
  2. MORPHINE [Concomitant]

REACTIONS (5)
  - AGITATION [None]
  - POLYURIA [None]
  - HYPERAESTHESIA [None]
  - DIARRHOEA [None]
  - INADEQUATE ANALGESIA [None]
